FAERS Safety Report 11626214 (Version 2)
Quarter: 2015Q4

REPORT INFORMATION
  Report Type: Spontaneous
  Country: GR (occurrence: GR)
  Receive Date: 20151013
  Receipt Date: 20151015
  Transmission Date: 20160304
  Serious: Yes (Other)
  Sender: FDA-Public Use
  Company Number: GR-SA-2015SA158389

PATIENT
  Age: 71 Year
  Sex: Female

DRUGS (7)
  1. PLAVIX [Suspect]
     Active Substance: CLOPIDOGREL BISULFATE
     Indication: CEREBROVASCULAR ACCIDENT
     Route: 065
     Dates: start: 20151006, end: 20151006
  2. FERRUM [Concomitant]
     Active Substance: FERROUS FUMARATE
  3. XOZAL [Concomitant]
     Active Substance: LEVOCETIRIZINE
  4. MEDROL [Concomitant]
     Active Substance: METHYLPREDNISOLONE
  5. FERRUM [Concomitant]
     Active Substance: FERROUS FUMARATE
  6. PLAVIX [Suspect]
     Active Substance: CLOPIDOGREL BISULFATE
     Indication: CEREBROVASCULAR ACCIDENT
     Route: 065
     Dates: start: 2010
  7. COAPROVEL [Concomitant]
     Active Substance: HYDROCHLOROTHIAZIDE\IRBESARTAN

REACTIONS (2)
  - Myelodysplastic syndrome [Unknown]
  - Accidental overdose [Unknown]

NARRATIVE: CASE EVENT DATE: 2013
